FAERS Safety Report 22111315 (Version 1)
Quarter: 2023Q1

REPORT INFORMATION
  Report Type: Spontaneous
  Country: AU (occurrence: AU)
  Receive Date: 20230317
  Receipt Date: 20230317
  Transmission Date: 20230418
  Serious: Yes (Other)
  Sender: FDA-Public Use
  Company Number: AU-ANIPHARMA-2023-AU-000082

PATIENT
  Age: 70 Year
  Sex: Female

DRUGS (12)
  1. ANASTROZOLE [Suspect]
     Active Substance: ANASTROZOLE
     Indication: Product used for unknown indication
     Route: 065
  2. ASPIRIN [Concomitant]
     Active Substance: ASPIRIN
     Route: 065
  3. CALCIUM [Concomitant]
     Active Substance: CALCIUM
     Route: 065
  4. UNSPECIFIED INGREDIENT [Concomitant]
     Active Substance: UNSPECIFIED INGREDIENT
     Route: 065
  5. FASLODEX [Suspect]
     Active Substance: FULVESTRANT
     Route: 030
  6. PALBOCICLIB [Suspect]
     Active Substance: PALBOCICLIB
     Route: 048
  7. RIBOCICLIB [Suspect]
     Active Substance: RIBOCICLIB
     Route: 048
  8. ABRAXANE [Suspect]
     Active Substance: PACLITAXEL
     Route: 065
  9. DENOSUMAB [Suspect]
     Active Substance: DENOSUMAB
     Route: 065
  10. CAPECITABINE [Suspect]
     Active Substance: CAPECITABINE
     Route: 065
  11. LETROZOLE [Suspect]
     Active Substance: LETROZOLE
     Route: 065
  12. VINORELBINE [Suspect]
     Active Substance: VINORELBINE TARTRATE
     Route: 065

REACTIONS (10)
  - Breast cancer [Unknown]
  - Rash [Unknown]
  - Gene mutation [Unknown]
  - Metastases to bone [Unknown]
  - Pulmonary embolism [Unknown]
  - Burning sensation [Unknown]
  - Joint stiffness [Unknown]
  - Nail avulsion [Unknown]
  - Pleural effusion [Unknown]
  - Mouth ulceration [Unknown]
